FAERS Safety Report 4735528-8 (Version None)
Quarter: 2005Q3

REPORT INFORMATION
  Report Type: 
  Country: None (occurrence: None)
  Receive Date: 20050801
  Receipt Date: 20050801
  Transmission Date: 20060218
  Serious: Yes (Hospitalization)
  Sender: FDA-Public Use
  Company Number: None

PATIENT
  Age: 41 Year
  Sex: Male

DRUGS (2)
  1. LISINOPRIL [Suspect]
     Indication: HYPERTENSION
     Dosage: 5MG PO DAILY
     Route: 048
  2. ABACAVIR [Suspect]
     Dosage: 600 MG DAILY
     Dates: start: 20050525, end: 20050615

REACTIONS (1)
  - SWELLING FACE [None]
